FAERS Safety Report 20755108 (Version 5)
Quarter: 2022Q3

REPORT INFORMATION
  Report Type: Spontaneous
  Country: US (occurrence: US)
  Receive Date: 20220427
  Receipt Date: 20220809
  Transmission Date: 20221027
  Serious: Yes (Hospitalization)
  Sender: FDA-Public Use
  Company Number: US-BRISTOL-MYERS SQUIBB COMPANY-2022-026669

PATIENT
  Age: 73 Year
  Sex: Male

DRUGS (3)
  1. REVLIMID [Suspect]
     Active Substance: LENALIDOMIDE
     Indication: Plasma cell myeloma
     Dosage: TAKE 1 WHOLE CAPSULE BY MOUTH W/ WATER,  W/OR W/O FOOD AT THE SAME TIME DAILY FOR 14 DAYS ON THEN 14
     Route: 048
     Dates: start: 20190222
  2. REVLIMID [Suspect]
     Active Substance: LENALIDOMIDE
     Route: 048
     Dates: start: 20200526
  3. REVLIMID [Suspect]
     Active Substance: LENALIDOMIDE
     Dosage: TAKING ONE WHOLE CAPSULE BY MOUTH WITH WATER WITH OR WITHOUT FOOD AT THE SAME TIME DAILY FOR ONE WEE
     Route: 048

REACTIONS (2)
  - Gallbladder disorder [Unknown]
  - Off label use [Unknown]
